FAERS Safety Report 5007441-2 (Version None)
Quarter: 2006Q2

REPORT INFORMATION
  Report Type: 
  Country: None (occurrence: None)
  Receive Date: 20060519
  Receipt Date: 20060519
  Transmission Date: 20061013
  Serious: Yes (Hospitalization, Other)
  Sender: FDA-Public Use
  Company Number: None

PATIENT
  Age: 5 Year
  Sex: Male
  Weight: 24 kg

DRUGS (2)
  1. ROCEPHIN [Suspect]
     Indication: KAWASAKI'S DISEASE
     Dosage: TWICE A DAY  IV
     Route: 042
     Dates: start: 20060305, end: 20060514
  2. ROCEPHIN [Suspect]
     Indication: PHARYNGITIS STREPTOCOCCAL
     Dosage: TWICE A DAY  IV
     Route: 042
     Dates: start: 20060305, end: 20060514

REACTIONS (4)
  - BLOOD DISORDER [None]
  - ILL-DEFINED DISORDER [None]
  - INFECTION [None]
  - INFLAMMATION [None]
